FAERS Safety Report 6828178-0 (Version None)
Quarter: 2010Q3

REPORT INFORMATION
  Report Type: 
  Country: None (occurrence: None)
  Receive Date: 20100708
  Receipt Date: 20100708
  Transmission Date: 20110219
  Serious: Yes (Hospitalization)
  Sender: FDA-Public Use
  Company Number: None

PATIENT
  Age: 37 Year
  Sex: Female
  Weight: 61 kg

DRUGS (2)
  1. VANCOMYCIN [Suspect]
     Indication: CAESAREAN SECTION
     Dosage: 1 GRAM TWICE DAILY IV
     Route: 041
  2. VANCOMYCIN [Suspect]
     Indication: WOUND INFECTION
     Dosage: 1 GRAM TWICE DAILY IV
     Route: 041

REACTIONS (2)
  - BLOOD CREATININE INCREASED [None]
  - DRUG LEVEL INCREASED [None]
